FAERS Safety Report 9782667 (Version 1)
Quarter: 2013Q4

REPORT INFORMATION
  Report Type: Spontaneous
  Country: US (occurrence: US)
  Receive Date: 20131226
  Receipt Date: 20131226
  Transmission Date: 20140711
  Serious: No
  Sender: FDA-Public Use
  Company Number: US-B.I. PHARMACEUTICALS,INC./RIDGEFIELD-2013-BI-42275BP

PATIENT
  Age: 78 Year
  Sex: Female
  Weight: 60 kg

DRUGS (10)
  1. PRADAXA [Suspect]
     Indication: ATRIAL FIBRILLATION
     Dosage: 300 MG
     Route: 048
     Dates: start: 2010
  2. LYRICA [Concomitant]
     Dosage: 50 MG
     Route: 048
  3. AMLODIPINE [Concomitant]
     Indication: HYPERTENSION
     Dosage: 5 MG
     Route: 048
  4. METOPROLOL [Concomitant]
     Indication: HYPERTENSION
     Dosage: 37.5 MG
     Route: 048
  5. FUROSEMIDE [Concomitant]
     Indication: OEDEMA
     Dosage: 40 MG
     Route: 048
  6. TRAMADOL [Concomitant]
     Indication: BACK PAIN
     Route: 048
  7. VALIUM [Concomitant]
     Indication: ANXIETY
     Dosage: 15 MG
     Route: 048
  8. MELOXICAM [Concomitant]
     Indication: ARTHRITIS
     Dosage: 15 MG
     Route: 048
  9. AVAPRO [Concomitant]
     Indication: HYPERTENSION
     Dosage: 300 MG
     Route: 048
  10. TIZANIDINE [Concomitant]
     Dosage: 2 MG
     Route: 048

REACTIONS (3)
  - Epistaxis [Recovered/Resolved]
  - Epistaxis [Recovered/Resolved]
  - Epistaxis [Recovered/Resolved]
